FAERS Safety Report 6816198-1 (Version None)
Quarter: 2010Q3

REPORT INFORMATION
  Report Type: 
  Country: None (occurrence: None)
  Receive Date: 20100705
  Receipt Date: 20100616
  Transmission Date: 20110219
  Serious: Yes (Hospitalization)
  Sender: FDA-Public Use
  Company Number: JP-SHIRE-SPV1-2009-01049

PATIENT

DRUGS (13)
  1. FOSRENOL [Suspect]
     Indication: HYPERPHOSPHATAEMIA
     Dosage: 750 MG, UNK
     Route: 048
     Dates: start: 20090508, end: 20090513
  2. FOSRENOL [Suspect]
     Indication: HYPERCALCAEMIA
  3. MICARDIS [Concomitant]
     Indication: HYPERTENSION
     Dosage: 40 MG, UNK
     Route: 048
  4. LANDEL [Concomitant]
     Indication: HYPERTENSION
     Route: 048
  5. SIGMART [Concomitant]
     Indication: HYPERTENSION
     Dosage: 10 MG, UNK
     Route: 048
  6. ADALAT CC [Concomitant]
     Indication: HYPERTENSION
     Dosage: 40 MG, UNK
     Route: 048
  7. KALIMATE                           /00067701/ [Concomitant]
     Indication: HYPERKALAEMIA
     Dosage: 15 G, UNK
     Route: 048
  8. PARIET [Concomitant]
     Indication: GASTRITIS
     Dosage: 10 MG, UNK
     Route: 048
  9. PARIET [Concomitant]
     Indication: REFLUX OESOPHAGITIS
  10. GASMOTIN [Concomitant]
     Indication: GASTRITIS
     Dosage: 15 MG, UNK
     Route: 048
  11. STROCAIN [Concomitant]
     Indication: GASTRITIS
     Dosage: 30 MG, UNK
     Route: 048
  12. EXCELASE [Concomitant]
     Route: 048
  13. SEVELAMER [Concomitant]
     Route: 048

REACTIONS (3)
  - GASTROINTESTINAL HAEMORRHAGE [None]
  - LARGE INTESTINAL ULCER [None]
  - PAIN [None]
